FAERS Safety Report 15366642 (Version 20)
Quarter: 2022Q2

REPORT INFORMATION
  Report Type: Spontaneous
  Country: BR (occurrence: BR)
  Receive Date: 20180910
  Receipt Date: 20220607
  Transmission Date: 20220721
  Serious: Yes (Hospitalization, Other)
  Sender: FDA-Public Use
  Company Number: BR-GLAXOSMITHKLINE-BR2017GSK190025

PATIENT

DRUGS (13)
  1. BENLYSTA [Suspect]
     Active Substance: BELIMUMAB
     Indication: Systemic lupus erythematosus
     Dosage: 580 MG, UNK
     Route: 042
     Dates: start: 20171123
  2. BENLYSTA [Suspect]
     Active Substance: BELIMUMAB
     Dosage: 600 MG, Z EVERY 28 DAYS
  3. METHOTREXATE [Suspect]
     Active Substance: METHOTREXATE
     Indication: Product used for unknown indication
     Dosage: UNK
  4. METFORMIN [Suspect]
     Active Substance: METFORMIN HYDROCHLORIDE
     Indication: Product used for unknown indication
     Dosage: UNK
  5. HYDROXYCHLOROQUINE [Suspect]
     Active Substance: HYDROXYCHLOROQUINE
     Indication: Product used for unknown indication
     Dosage: UNK
  6. AZATHIOPRINE [Suspect]
     Active Substance: AZATHIOPRINE
     Indication: Product used for unknown indication
     Dosage: UNK
  7. CIMETIDINE [Concomitant]
     Active Substance: CIMETIDINE
     Indication: Product used for unknown indication
     Dosage: UNK
  8. METOCLOPRAMIDE HYDROCHLORIDE [Concomitant]
     Active Substance: METOCLOPRAMIDE HYDROCHLORIDE
     Indication: Product used for unknown indication
     Dosage: UNK
  9. PREDNISONE [Concomitant]
     Active Substance: PREDNISONE
     Indication: Product used for unknown indication
     Dosage: 7.5 MG, UNK
  10. HYDROXYCHLOROQUINE SULFATE [Concomitant]
     Active Substance: HYDROXYCHLOROQUINE SULFATE
     Indication: Product used for unknown indication
     Dosage: UNK
  11. LORATADINE [Concomitant]
     Active Substance: LORATADINE
     Indication: Product used for unknown indication
     Dosage: UNK
  12. MULTIGRIP [Concomitant]
     Indication: Product used for unknown indication
     Dosage: UNK
  13. VICK TEA (PARACETAMOL + PHENYLEPHRINE HYDROCHLORIDE) [Concomitant]
     Indication: Product used for unknown indication
     Dosage: UNK

REACTIONS (42)
  - Nephritis [Unknown]
  - Lupus pancreatitis [Not Recovered/Not Resolved]
  - Malaise [Recovered/Resolved]
  - Abdominal discomfort [Unknown]
  - Dry mouth [Unknown]
  - Pain [Unknown]
  - Oropharyngeal pain [Recovered/Resolved]
  - Cough [Unknown]
  - Pain in extremity [Unknown]
  - Eye irritation [Unknown]
  - Stress [Unknown]
  - Somnolence [Unknown]
  - Weight decreased [Unknown]
  - Liver disorder [Unknown]
  - Transaminases increased [Unknown]
  - Headache [Unknown]
  - Fatigue [Unknown]
  - Nausea [Unknown]
  - Gastrointestinal disorder [Unknown]
  - Gait disturbance [Unknown]
  - Arthralgia [Unknown]
  - Increased upper airway secretion [Unknown]
  - Dysuria [Unknown]
  - Pollakiuria [Unknown]
  - Urinary tract infection [Recovering/Resolving]
  - Pharyngeal inflammation [Unknown]
  - Urine output decreased [Unknown]
  - Condition aggravated [Unknown]
  - Speech disorder [Unknown]
  - Memory impairment [Unknown]
  - COVID-19 [Unknown]
  - Nasal discomfort [Unknown]
  - Anosmia [Unknown]
  - Ageusia [Unknown]
  - Rhinitis [Unknown]
  - Sneezing [Unknown]
  - Therapy interrupted [Unknown]
  - Circumstance or information capable of leading to medication error [Unknown]
  - Therapeutic product effect decreased [Unknown]
  - Product dose omission issue [Recovered/Resolved]
  - Overdose [Recovered/Resolved]
  - Product preparation issue [Recovered/Resolved]

NARRATIVE: CASE EVENT DATE: 20171123
